FAERS Safety Report 7934741-6 (Version None)
Quarter: 2011Q4

REPORT INFORMATION
  Report Type: 
  Country: None (occurrence: None)
  Receive Date: 20111122
  Receipt Date: 20111107
  Transmission Date: 20120403
  Serious: Yes (Hospitalization)
  Sender: FDA-Public Use
  Company Number: ES-WATSON-2011-19322

PATIENT
  Age: 42 Year
  Sex: Male

DRUGS (2)
  1. GEMCITABINE [Suspect]
     Indication: METASTASES TO LUNG
     Dosage: UNK
     Route: 065
     Dates: start: 20080801
  2. BEVACIZUMAB [Suspect]
     Indication: METASTATIC NEOPLASM

REACTIONS (8)
  - HAEMATURIA [None]
  - GLOMERULONEPHRITIS MEMBRANOPROLIFERATIVE [None]
  - PROTEINURIA [None]
  - BLOOD CREATININE INCREASED [None]
  - NORMOCHROMIC NORMOCYTIC ANAEMIA [None]
  - OEDEMA [None]
  - HYPERTENSION [None]
  - HEADACHE [None]
